FAERS Safety Report 4578591-X (Version None)
Quarter: 2005Q1

REPORT INFORMATION
  Report Type: 
  Country: None (occurrence: None)
  Receive Date: 20050209
  Receipt Date: 20050209
  Transmission Date: 20050727
  Serious: Yes (Disabling, Other)
  Sender: FDA-Public Use
  Company Number: None

PATIENT
  Sex: Female
  Weight: 63.5036 kg

DRUGS (5)
  1. NIX [Suspect]
     Indication: LICE INFESTATION
     Dosage: 1 BOTTLE PER FAMILY MEMBER, ONCE PER WEEK
     Dates: start: 20041001, end: 20050101
  2. OVIDE [Suspect]
     Indication: LICE INFESTATION
     Dosage: 1 BOTTLE PER FAMILY MEMBER, ONCE PER WEEK
     Dates: start: 20041001, end: 20050101
  3. LINDANE [Suspect]
     Indication: LICE INFESTATION
     Dosage: 1 BOTTLE PER FAMILY MEMBER, ONCE PER WEEK
     Dates: start: 20041001, end: 20050101
  4. RID MOUSSE [Suspect]
     Indication: LICE INFESTATION
     Dosage: 1 BOTTLE PER FAMILY MEMBER, ONCE PER WEEK
     Dates: start: 20041001, end: 20050101
  5. MAYONAISE [Suspect]

REACTIONS (5)
  - ABNORMAL BEHAVIOUR [None]
  - AGGRESSION [None]
  - ANGER [None]
  - PAIN OF SKIN [None]
  - THERAPEUTIC PRODUCT INEFFECTIVE [None]
